FAERS Safety Report 5639306-7 (Version None)
Quarter: 2008Q1

REPORT INFORMATION
  Report Type: 
  Country: None (occurrence: None)
  Receive Date: 20080226
  Receipt Date: 20080215
  Transmission Date: 20080703
  Serious: Yes (Death)
  Sender: FDA-Public Use
  Company Number: MY-PFIZER INC-2008015144

PATIENT
  Age: 45 Year
  Sex: Male

DRUGS (1)
  1. DIFLUCAN [Suspect]

REACTIONS (1)
  - CARDIAC ARREST [None]
